FAERS Safety Report 16349545 (Version 1)
Quarter: 2019Q2

REPORT INFORMATION
  Report Type: Spontaneous
  Country: US (occurrence: US)
  Receive Date: 20190523
  Receipt Date: 20190523
  Transmission Date: 20190711
  Serious: Yes (Other)
  Sender: FDA-Public Use
  Company Number: US-TEVA-2019-US-1055026

PATIENT
  Sex: Female

DRUGS (1)
  1. KELNOR 1/35 [Suspect]
     Active Substance: ETHINYL ESTRADIOL\ETHYNODIOL DIACETATE
     Route: 065

REACTIONS (6)
  - Eye swelling [Unknown]
  - Lip swelling [Unknown]
  - Skin reaction [Unknown]
  - Purulent discharge [Unknown]
  - Visual impairment [Unknown]
  - Rash [Unknown]
